FAERS Safety Report 9934583 (Version 1)
Quarter: 2014Q1

REPORT INFORMATION
  Report Type: Spontaneous
  Country: US (occurrence: US)
  Receive Date: 20140228
  Receipt Date: 20140228
  Transmission Date: 20141002
  Serious: No
  Sender: FDA-Public Use
  Company Number: US-ASTRAZENECA-2013SE87283

PATIENT
  Age: 74 Year
  Sex: Male

DRUGS (10)
  1. TOPROL-XL [Suspect]
     Indication: HEART RATE
     Route: 048
     Dates: start: 2003, end: 2009
  2. TOPROL-XL [Suspect]
     Indication: HEART RATE
     Route: 048
     Dates: start: 2009, end: 2009
  3. TOPROL-XL [Suspect]
     Indication: HEART RATE
     Dosage: GENERIC
     Route: 048
     Dates: start: 2009
  4. OMEPRAZOLE [Suspect]
     Indication: GASTROOESOPHAGEAL REFLUX DISEASE
     Dosage: 20 MG DAILY PRN
     Route: 048
  5. MYCARDIS [Concomitant]
     Indication: BLOOD PRESSURE ABNORMAL
     Route: 048
  6. SIMVASTATIN [Concomitant]
     Indication: BLOOD CHOLESTEROL ABNORMAL
     Route: 048
  7. NIASPAN [Concomitant]
     Indication: BLOOD CHOLESTEROL ABNORMAL
     Route: 048
  8. ALLOPURINOL [Concomitant]
     Indication: BLOOD URIC ACID
     Route: 048
  9. SUPPLEMENTS [Concomitant]
  10. ZETIA [Concomitant]
     Indication: BLOOD CHOLESTEROL ABNORMAL
     Route: 048

REACTIONS (4)
  - Heart rate increased [Recovered/Resolved]
  - Blood pressure increased [Recovered/Resolved]
  - Off label use [Not Recovered/Not Resolved]
  - Drug ineffective [Recovered/Resolved]
